FAERS Safety Report 12781824 (Version 3)
Quarter: 2016Q4

REPORT INFORMATION
  Report Type: Spontaneous
  Country: BR (occurrence: BR)
  Receive Date: 20160926
  Receipt Date: 20161006
  Transmission Date: 20170207
  Serious: Yes (Death, Hospitalization, Other)
  Sender: FDA-Public Use
  Company Number: BR-BIOMARINAP-BR-2016-111068

PATIENT
  Sex: Female
  Weight: 24 kg

DRUGS (1)
  1. NAGLAZYME [Suspect]
     Active Substance: GALSULFASE
     Indication: MUCOPOLYSACCHARIDOSIS VI
     Dosage: UNK UNK, QW
     Route: 042
     Dates: start: 20130116

REACTIONS (9)
  - Infection [Not Recovered/Not Resolved]
  - Swelling face [Unknown]
  - Cardio-respiratory arrest [Fatal]
  - Respiratory distress [Unknown]
  - Pneumonia [Not Recovered/Not Resolved]
  - Abdominal distension [Recovering/Resolving]
  - Fatigue [Unknown]
  - Cyanosis [Unknown]
  - Lung disorder [Unknown]
